FAERS Safety Report 5871652-4 (Version None)
Quarter: 2008Q3

REPORT INFORMATION
  Report Type: 
  Country: None (occurrence: None)
  Receive Date: 20080905
  Receipt Date: 20080826
  Transmission Date: 20090109
  Serious: Yes (Hospitalization, Other)
  Sender: FDA-Public Use
  Company Number: US-JNJFOC-20051204112

PATIENT
  Sex: Male
  Weight: 59.5 kg

DRUGS (15)
  1. TMC114 [Suspect]
     Dosage: SWITCHED TO PREZISTA ON 16-FEB-2007
     Route: 048
  2. TMC114 [Suspect]
     Route: 048
  3. TMC114 [Suspect]
     Indication: HIV INFECTION
     Route: 048
  4. RITONAVIR [Suspect]
     Indication: HIV INFECTION
     Route: 048
  5. TENOFOVIR [Concomitant]
     Indication: HIV INFECTION
     Route: 048
  6. COMBIVIR [Concomitant]
     Indication: HIV INFECTION
     Dosage: 150/300 MG
     Route: 048
  7. TEMAZEPAM [Concomitant]
     Indication: INSOMNIA
     Dosage: STARTED PRE TRIAL
     Route: 048
  8. ZYRTEC [Concomitant]
     Indication: DERMATITIS
     Dosage: STARTED PRE TRIAL
     Route: 048
  9. FLUOCINONIDE [Concomitant]
     Indication: DRY SKIN
     Dosage: STARTED PRE TRIAL
     Route: 061
  10. O2 [Concomitant]
     Indication: DYSPNOEA
     Dosage: 1 L/MIN CONTINUOUSLY
     Route: 055
  11. SPIRIVA [Concomitant]
     Indication: DYSPNOEA
     Route: 055
  12. BACTRIM DS [Concomitant]
     Indication: ANTIFUNGAL PROPHYLAXIS
     Route: 048
  13. WARFARIN SODIUM [Concomitant]
     Indication: THROMBOSIS PROPHYLAXIS
     Route: 048
  14. ENDOCET [Concomitant]
     Indication: HIP SURGERY
     Dosage: 5/325MG
     Route: 048
  15. ALBUTEROL [Concomitant]
     Indication: DYSPNOEA
     Route: 055

REACTIONS (2)
  - HIP SURGERY [None]
  - POST PROCEDURAL INFECTION [None]
